FAERS Safety Report 6117351-5 (Version None)
Quarter: 2009Q1

REPORT INFORMATION
  Report Type: 
  Country: None (occurrence: None)
  Receive Date: 20090314
  Receipt Date: 20090114
  Transmission Date: 20090719
  Serious: No
  Sender: FDA-Public Use
  Company Number: US-ABBOTT-09P-163-0497980-00

PATIENT
  Sex: Female
  Weight: 67.646 kg

DRUGS (10)
  1. HUMIRA [Suspect]
     Indication: CROHN'S DISEASE
     Route: 058
     Dates: start: 20070419
  2. WELLBUTRIN [Concomitant]
     Indication: EX-TOBACCO USER
  3. WELLBUTRIN [Concomitant]
     Indication: DEPRESSION
  4. WELLBUTRIN [Concomitant]
     Indication: ANXIETY
  5. PROZAC [Concomitant]
     Indication: ANXIETY
  6. PROZAC [Concomitant]
     Indication: DEPRESSION
  7. AMBIEN [Concomitant]
     Indication: DRUG USE FOR UNKNOWN INDICATION
  8. KLONOPIN [Concomitant]
     Indication: DRUG USE FOR UNKNOWN INDICATION
  9. LAMICTAL [Concomitant]
     Indication: DRUG USE FOR UNKNOWN INDICATION
  10. PREVACID [Concomitant]
     Indication: DRUG USE FOR UNKNOWN INDICATION

REACTIONS (3)
  - ABDOMINAL PAIN [None]
  - GASTROINTESTINAL INFLAMMATION [None]
  - HAEMATOCHEZIA [None]
